FAERS Safety Report 5039211-3 (Version None)
Quarter: 2006Q2

REPORT INFORMATION
  Report Type: 
  Country: None (occurrence: None)
  Receive Date: 20060601
  Receipt Date: 20060327
  Transmission Date: 20061013
  Serious: No
  Sender: FDA-Public Use
  Company Number: 2005PV003360

PATIENT
  Age: 53 Year
  Sex: Female
  Weight: 90.7194 kg

DRUGS (11)
  1. BYETTA [Suspect]
     Indication: DIABETES MELLITUS NON-INSULIN-DEPENDENT
     Dosage: SEE IMAGE
     Route: 058
     Dates: start: 20050927, end: 20051001
  2. BYETTA [Suspect]
     Indication: DIABETES MELLITUS NON-INSULIN-DEPENDENT
     Dosage: SEE IMAGE
     Route: 058
     Dates: start: 20051001, end: 20051201
  3. AMARYL [Concomitant]
  4. VASOTEC [Concomitant]
  5. DYAZIDE [Concomitant]
  6. ZETIA [Concomitant]
  7. PRILOSEC OTC [Concomitant]
  8. ACETAMINOPHEN [Concomitant]
  9. HYDROXYZINE [Concomitant]
  10. MULTIVITAMIN [Concomitant]
  11. AVANDIA [Concomitant]

REACTIONS (4)
  - AMENORRHOEA [None]
  - BLOOD GLUCOSE FLUCTUATION [None]
  - INJECTION SITE PAIN [None]
  - OLIGOMENORRHOEA [None]
